FAERS Safety Report 7511082-2 (Version None)
Quarter: 2011Q2

REPORT INFORMATION
  Report Type: 
  Country: None (occurrence: None)
  Receive Date: 20110519
  Receipt Date: 20110504
  Transmission Date: 20111010
  Serious: Yes (Hospitalization)
  Sender: FDA-Public Use
  Company Number: 2011MA005038

PATIENT
  Age: 52 Year
  Sex: Female

DRUGS (1)
  1. SPIRONOLACTONE [Suspect]
     Indication: HYPERTENSION

REACTIONS (12)
  - PROTEIN TOTAL DECREASED [None]
  - BLOOD CREATININE INCREASED [None]
  - THROMBOCYTOPENIA [None]
  - ACUTE GENERALISED EXANTHEMATOUS PUSTULOSIS [None]
  - HEPATIC ENZYME INCREASED [None]
  - GENERAL PHYSICAL HEALTH DETERIORATION [None]
  - BLOOD ALBUMIN DECREASED [None]
  - ARTHRALGIA [None]
  - LEUKOCYTOSIS [None]
  - NEUTROPHILIA [None]
  - OEDEMA PERIPHERAL [None]
  - ERYTHEMA MULTIFORME [None]
